FAERS Safety Report 5009720-1 (Version None)
Quarter: 2006Q2

REPORT INFORMATION
  Report Type: 
  Country: None (occurrence: None)
  Receive Date: 20060524
  Receipt Date: 19990723
  Transmission Date: 20061013
  Serious: Yes (Hospitalization, Other)
  Sender: FDA-Public Use
  Company Number: TOS-000443

PATIENT
  Age: 52 Year
  Sex: Male
  Weight: 99.2 kg

DRUGS (4)
  1. BEXXAR [Suspect]
     Indication: NON-HODGKIN'S LYMPHOMA
     Route: 042
     Dates: start: 19990715, end: 19990715
  2. IODINE I 131 TOSITUMOMAB [Suspect]
     Indication: NON-HODGKIN'S LYMPHOMA
     Route: 042
     Dates: start: 19990715, end: 19990715
  3. BEXXAR [Suspect]
     Route: 042
     Dates: start: 19990728, end: 19980728
  4. IODINE I 131 TOSITUMOMAB [Suspect]
     Route: 042
     Dates: start: 19990728, end: 19990728

REACTIONS (1)
  - ANAEMIA [None]
